FAERS Safety Report 5020195-9 (Version None)
Quarter: 2006Q2

REPORT INFORMATION
  Report Type: 
  Country: None (occurrence: None)
  Receive Date: 20060602
  Receipt Date: 20060512
  Transmission Date: 20061013
  Serious: Yes (Congenital Anomaly)
  Sender: FDA-Public Use
  Company Number: GB200601002469

PATIENT
  Sex: Female

DRUGS (2)
  1. FLUOXETINE HCL [Suspect]
     Dosage: TRANSPLACENTAL
     Route: 064
  2. MICROGYN (ETHINYLESTRADIOL, LEVONORGESTREL) [Concomitant]

REACTIONS (5)
  - ATRIAL SEPTAL DEFECT [None]
  - DRUG EXPOSURE DURING PREGNANCY [None]
  - ESCHERICHIA URINARY TRACT INFECTION [None]
  - PATENT DUCTUS ARTERIOSUS [None]
  - URINARY TRACT INFECTION NEONATAL [None]
